FAERS Safety Report 10022061 (Version 1)
Quarter: 2014Q1

REPORT INFORMATION
  Report Type: Spontaneous
  Country: US (occurrence: None)
  Receive Date: 20140318
  Receipt Date: 20140318
  Transmission Date: 20141002
  Serious: Yes (Hospitalization)
  Sender: FDA-Public Use
  Company Number: None

PATIENT
  Age: 58 Year
  Sex: Female

DRUGS (2)
  1. FORTEO 20 MCG SQ DAILY LILLY [Suspect]
     Indication: OSTEOPOROSIS
     Dosage: 20 MCG DAILY SQ
     Route: 058
     Dates: start: 20131030
  2. FORTEO 20 MCG SQ DAILY LILLY [Suspect]
     Indication: CHRONIC OBSTRUCTIVE PULMONARY DISEASE
     Dosage: 20 MCG DAILY SQ
     Route: 058
     Dates: start: 20131030

REACTIONS (5)
  - Asthenia [None]
  - Tremor [None]
  - Pain in extremity [None]
  - Back pain [None]
  - Chronic obstructive pulmonary disease [None]
